FAERS Safety Report 9530418 (Version 5)
Quarter: 2013Q4

REPORT INFORMATION
  Report Type: Spontaneous
  Country: US (occurrence: US)
  Receive Date: 20130918
  Receipt Date: 20131115
  Transmission Date: 20140711
  Serious: No
  Sender: FDA-Public Use
  Company Number: US-009507513-1309USA001769

PATIENT
  Age: 46 Year
  Sex: Female

DRUGS (3)
  1. REBETOL [Suspect]
     Indication: HEPATITIS C
     Dosage: UNK
     Route: 048
     Dates: start: 20130816
  2. PEGINTRON [Suspect]
     Indication: HEPATITIS C
     Dosage: REDIPEN
     Dates: start: 20130816
  3. VICTRELIS [Suspect]
     Indication: HEPATITIS C
     Dosage: UNK
     Route: 048
     Dates: start: 20130913

REACTIONS (24)
  - Dyspnoea exertional [Unknown]
  - Weight increased [Unknown]
  - Decreased appetite [Unknown]
  - Anxiety [Unknown]
  - Abdominal pain upper [Unknown]
  - Gastrooesophageal reflux disease [Unknown]
  - Dysgeusia [Unknown]
  - Abdominal pain [Unknown]
  - Mental status changes [Unknown]
  - Fatigue [Unknown]
  - Dysphagia [Recovered/Resolved]
  - Depression [Unknown]
  - Abdominal distension [Unknown]
  - Abdominal pain [Unknown]
  - Frequent bowel movements [Unknown]
  - Fatigue [Unknown]
  - Thirst [Unknown]
  - Nausea [Unknown]
  - Depression [Unknown]
  - Asthenia [Unknown]
  - Weight increased [Unknown]
  - Gastritis [Unknown]
  - Abdominal distension [Unknown]
  - Abdominal pain upper [Unknown]
